FAERS Safety Report 8036566-2 (Version None)
Quarter: 2012Q1

REPORT INFORMATION
  Report Type: 
  Country: None (occurrence: None)
  Receive Date: 20120111
  Receipt Date: 20120102
  Transmission Date: 20120608
  Serious: Yes (Death)
  Sender: FDA-Public Use
  Company Number: TR-MEDIMMUNE-MEDI-0014379

PATIENT
  Sex: Female
  Weight: 3.5 kg

DRUGS (2)
  1. SYNAGIS [Suspect]
     Route: 030
     Dates: start: 20111230, end: 20111231
  2. OXYGEN [Concomitant]
     Route: 055
     Dates: end: 20111231

REACTIONS (1)
  - DYSPNOEA [None]
